FAERS Safety Report 4975153-7 (Version None)
Quarter: 2006Q2

REPORT INFORMATION
  Report Type: 
  Country: None (occurrence: None)
  Receive Date: 20060418
  Receipt Date: 20060410
  Transmission Date: 20061013
  Serious: Yes (Other)
  Sender: FDA-Public Use
  Company Number: 2006UW06334

PATIENT
  Age: 69 Year
  Sex: Female
  Weight: 47.2 kg

DRUGS (3)
  1. CRESTOR [Suspect]
     Indication: HYPERCHOLESTEROLAEMIA
     Route: 048
     Dates: start: 20051025, end: 20060201
  2. ASPIRIN [Concomitant]
     Dosage: LOW DOSE
  3. MULTI-VITAMIN [Concomitant]

REACTIONS (7)
  - ERYTHEMA [None]
  - FALL [None]
  - LOSS OF CONSCIOUSNESS [None]
  - PYREXIA [None]
  - RASH [None]
  - SKIN DISORDER [None]
  - SWELLING FACE [None]
